FAERS Safety Report 19411983 (Version 1)
Quarter: 2021Q2

REPORT INFORMATION
  Report Type: Spontaneous
  Country: US (occurrence: US)
  Receive Date: 20210614
  Receipt Date: 20210614
  Transmission Date: 20210717
  Serious: No
  Sender: FDA-Public Use
  Company Number: None

PATIENT
  Age: 68 Year
  Sex: Male

DRUGS (2)
  1. SOFOSBUVIR/VELPATASVIR 400?100 MG ASEGUA THERAPEUTICS [Suspect]
     Active Substance: SOFOSBUVIR\VELPATASVIR
     Indication: HEPATITIS VIRAL
     Dosage: ?          OTHER DOSE:400?100 MG ;?
     Route: 048
     Dates: start: 20210512
  2. SOFOSBUVIR/VELPATASVIR 400?100 MG ASEGUA THERAPEUTICS [Suspect]
     Active Substance: SOFOSBUVIR\VELPATASVIR
     Indication: HEPATITIS C
     Dosage: ?          OTHER DOSE:400?100 MG ;?
     Route: 048
     Dates: start: 20210512

REACTIONS (2)
  - Swelling face [None]
  - Therapy interrupted [None]

NARRATIVE: CASE EVENT DATE: 20210530
